FAERS Safety Report 7399971-3 (Version None)
Quarter: 2011Q2

REPORT INFORMATION
  Report Type: 
  Country: None (occurrence: None)
  Receive Date: 20110405
  Receipt Date: 20110405
  Transmission Date: 20111010
  Serious: Yes (Other)
  Sender: FDA-Public Use
  Company Number: None

PATIENT
  Age: 64 Year
  Sex: Female
  Weight: 118 kg

DRUGS (16)
  1. ASPIRIN [Concomitant]
  2. IRBESARTAN [Concomitant]
  3. LORATADINE [Concomitant]
  4. M.V.I. [Concomitant]
  5. TRAMADOL [Concomitant]
  6. NIACIN [Suspect]
     Indication: DYSLIPIDAEMIA
     Dosage: 500MG RR
     Dates: start: 20100614
  7. OMEPRAZOLE [Concomitant]
  8. REGULAR INSULIN [Concomitant]
  9. GLIMEPIRIDE [Concomitant]
  10. FLUTICASON/SALMETEROL [Concomitant]
  11. NIACIN [Concomitant]
  12. CITRACAL [Concomitant]
  13. AZELASTINE HCL [Concomitant]
  14. CHOLECALCIFEROL [Concomitant]
  15. VIT B12 [Concomitant]
  16. METFORMIN [Concomitant]

REACTIONS (3)
  - PRURITUS GENERALISED [None]
  - FLUSHING [None]
  - PRODUCT FORMULATION ISSUE [None]
